FAERS Safety Report 10061886 (Version 1)
Quarter: 2014Q2

REPORT INFORMATION
  Report Type: Spontaneous
  Country: US (occurrence: US)
  Receive Date: 20140407
  Receipt Date: 20140407
  Transmission Date: 20141212
  Serious: No
  Sender: FDA-Public Use
  Company Number: US-BIOGENIDEC-2014BI031878

PATIENT
  Sex: Female
  Weight: 60 kg

DRUGS (12)
  1. TYSABRI [Suspect]
     Indication: MULTIPLE SCLEROSIS
     Route: 042
     Dates: start: 20071001
  2. ESTRADIOL [Concomitant]
  3. PAROXETINE HCL [Concomitant]
  4. TRIMETOPRIM [Concomitant]
  5. SYNTHROID [Concomitant]
  6. KLONOPIN [Concomitant]
  7. TRAZODONE HCL [Concomitant]
  8. FIORICET [Concomitant]
  9. GABAPENTIN [Concomitant]
  10. IMITREX [Concomitant]
  11. METHADONE [Concomitant]
  12. OXYCODONE HCL [Concomitant]

REACTIONS (6)
  - Limb traumatic amputation [Unknown]
  - Pain in extremity [Unknown]
  - Neuroma [Unknown]
  - Balance disorder [Unknown]
  - Fatigue [Unknown]
  - Headache [Unknown]
